FAERS Safety Report 12600638 (Version 4)
Quarter: 2016Q4

REPORT INFORMATION
  Report Type: Report from Study
  Country: DE (occurrence: DE)
  Receive Date: 20160727
  Receipt Date: 20161213
  Transmission Date: 20170207
  Serious: Yes (Death, Other)
  Sender: FDA-Public Use
  Company Number: DE-GILEAD-2016-0207668

PATIENT
  Age: 75 Year
  Sex: Female
  Weight: 74 kg

DRUGS (10)
  1. RITUXIMAB [Concomitant]
     Active Substance: RITUXIMAB
     Dosage: UNK
     Dates: start: 20151020
  2. COTRIMOXAZOLE [Concomitant]
     Active Substance: SULFAMETHOXAZOLE\TRIMETHOPRIM
     Indication: PROPHYLAXIS
     Dosage: UNK
     Dates: start: 20160321
  3. E-RATIOPHARM [Concomitant]
     Dosage: UNK
     Dates: start: 20160321
  4. RITUXIMAB [Concomitant]
     Active Substance: RITUXIMAB
     Dosage: UNK
     Dates: start: 20151116, end: 20151129
  5. IDELALISIB [Suspect]
     Active Substance: IDELALISIB
     Indication: B-CELL LYMPHOMA
  6. CERTOPARIN SODIUM [Concomitant]
     Active Substance: CERTOPARIN SODIUM
     Dosage: 3000 DF, UNK
     Route: 058
     Dates: start: 20151228, end: 20160110
  7. IDELALISIB [Suspect]
     Active Substance: IDELALISIB
     Indication: CHRONIC LYMPHOCYTIC LEUKAEMIA
     Dosage: 150 MG, BID
     Route: 048
     Dates: start: 20151116, end: 20160322
  8. ALLOPURINOL-RATIOPHARM [Concomitant]
     Indication: PROPHYLAXIS
     Dosage: UNK
     Dates: start: 20160321
  9. RITUXIMAB [Concomitant]
     Active Substance: RITUXIMAB
     Dosage: UNK
     Dates: start: 20151130
  10. SF [Concomitant]
     Active Substance: SODIUM FLUORIDE

REACTIONS (2)
  - Pneumonia chlamydial [Fatal]
  - Hepatitis infectious [Not Recovered/Not Resolved]

NARRATIVE: CASE EVENT DATE: 20160322
